FAERS Safety Report 8132697-7 (Version None)
Quarter: 2012Q1

REPORT INFORMATION
  Report Type: 
  Country: None (occurrence: None)
  Receive Date: 20120207
  Receipt Date: 20120126
  Transmission Date: 20120608
  Serious: Yes (Hospitalization)
  Sender: FDA-Public Use
  Company Number: 1179420

PATIENT
  Age: 30 Year
  Sex: Male

DRUGS (4)
  1. GENTAMICIN [Concomitant]
  2. CEFTRIAXONE [Concomitant]
  3. VANCOMYCIN HYDROCHLORIDE [Suspect]
     Indication: ANTIBIOTIC THERAPY
     Dosage: 0.5 G, , 0.5 G,
  4. VANCOMYCIN HYDROCHLORIDE [Suspect]
     Indication: ACUTE ENDOCARDITIS
     Dosage: 0.5 G, , 0.5 G,

REACTIONS (6)
  - TUBULOINTERSTITIAL NEPHRITIS [None]
  - RENAL FAILURE ACUTE [None]
  - BLOOD LACTATE DEHYDROGENASE INCREASED [None]
  - HAEMODIALYSIS [None]
  - DRUG RASH WITH EOSINOPHILIA AND SYSTEMIC SYMPTOMS [None]
  - LYMPHADENOPATHY [None]
